FAERS Safety Report 10064066 (Version 1)
Quarter: 2014Q2

REPORT INFORMATION
  Report Type: Spontaneous
  Country: US (occurrence: US)
  Receive Date: 20140408
  Receipt Date: 20140408
  Transmission Date: 20141212
  Serious: Yes (Hospitalization)
  Sender: FDA-Public Use
  Company Number: US-ASTRAZENECA-2014SE23557

PATIENT
  Age: 60 Year
  Sex: Male

DRUGS (2)
  1. BRILINTA [Suspect]
     Indication: AORTIC STENT INSERTION
     Route: 048
     Dates: start: 20140331
  2. ASPIRIN [Concomitant]

REACTIONS (1)
  - Thrombosis in device [Unknown]
